FAERS Safety Report 13607171 (Version 2)
Quarter: 2017Q3

REPORT INFORMATION
  Report Type: Spontaneous
  Country: GB (occurrence: GB)
  Receive Date: 20170602
  Receipt Date: 20170718
  Transmission Date: 20171127
  Serious: Yes (Other)
  Sender: FDA-Public Use
  Company Number: GB-AMGEN-GBRSP2017081426

PATIENT
  Age: 76 Year
  Sex: Female

DRUGS (1)
  1. XGEVA [Suspect]
     Active Substance: DENOSUMAB
     Indication: METASTASES TO BONE
     Dosage: UNK
     Route: 042

REACTIONS (3)
  - Incorrect route of drug administration [Unknown]
  - Osteonecrosis of jaw [Recovering/Resolving]
  - Tooth extraction [Unknown]
